FAERS Safety Report 5393740-1 (Version None)
Quarter: 2007Q3

REPORT INFORMATION
  Report Type: 
  Country: None (occurrence: None)
  Receive Date: 20070719
  Receipt Date: 20070719
  Transmission Date: 20080115
  Serious: Yes (Hospitalization)
  Sender: FDA-Public Use
  Company Number: None

PATIENT
  Age: 47 Year
  Sex: Female
  Weight: 85.1 kg

DRUGS (25)
  1. CIPROFLOXACIN [Suspect]
  2. LISINOPRIL [Concomitant]
  3. FUROSEMIDE [Concomitant]
  4. DOCUSATE CA [Concomitant]
  5. HUMULIN N [Concomitant]
  6. GLIPIZIDE [Concomitant]
  7. METOPROLOL SUCCINATE [Concomitant]
  8. ASPIRIN [Concomitant]
  9. SIMVASTATIN [Concomitant]
  10. GEMFIBROZIL [Concomitant]
  11. TRIAMCINOLONE ACETONIDE [Concomitant]
  12. HYDROXYZINE PAMOATE [Concomitant]
  13. METFORMIN HCL [Concomitant]
  14. LORAZEPAM [Concomitant]
  15. SERTRALINE HCL [Concomitant]
  16. M 10/GUAIFENESN [Concomitant]
  17. ACETAMINOPHEN AND OXYCODONE HCL [Concomitant]
  18. DIPHENHYDRAMINE HCL [Concomitant]
  19. POTASSIUM BICARBONATE [Concomitant]
  20. CALCIUM CARBONATE [Concomitant]
  21. CHOLESTYRAMINE [Concomitant]
  22. LUBRIDERM [Concomitant]
  23. ISOSORBIDE MONONITRATE [Concomitant]
  24. HEMORRHOIDAL/HC [Concomitant]
  25. NITROGLYCERIN [Concomitant]

REACTIONS (2)
  - PRURITUS [None]
  - RASH [None]
